FAERS Safety Report 6490736-3 (Version None)
Quarter: 2009Q4

REPORT INFORMATION
  Report Type: 
  Country: None (occurrence: None)
  Receive Date: 20091211
  Receipt Date: 20091130
  Transmission Date: 20100525
  Serious: Yes (Death)
  Sender: FDA-Public Use
  Company Number: JP-ABBOTT-09P-087-0600626-00

PATIENT
  Age: 74 Year
  Sex: Male

DRUGS (8)
  1. LEUPLIN SR FOR INJECTION 11.25 MG [Suspect]
     Indication: PROSTATE CANCER STAGE IV
     Route: 058
     Dates: start: 20060904, end: 20071014
  2. TAKEPRON [Concomitant]
     Indication: REFLUX OESOPHAGITIS
     Route: 048
     Dates: end: 20071225
  3. BICALUTAMIDE [Concomitant]
     Indication: PROSTATE CANCER STAGE IV
     Route: 048
     Dates: start: 20060919, end: 20061018
  4. BUP-4 [Concomitant]
     Indication: URINARY TRACT DISORDER
     Route: 048
     Dates: start: 20061017, end: 20070523
  5. MONVAN [Concomitant]
     Indication: PROSTATE CANCER STAGE IV
     Route: 048
     Dates: start: 20070522, end: 20071214
  6. ULCUT [Concomitant]
     Indication: REFLUX OESOPHAGITIS
     Route: 048
     Dates: start: 20070720, end: 20071225
  7. OXYCONTIN [Concomitant]
     Indication: PAIN
     Route: 048
     Dates: start: 20071116, end: 20071215
  8. SOSEGON [Concomitant]
     Indication: PAIN
     Route: 048
     Dates: start: 20070803, end: 20071225

REACTIONS (3)
  - ACUTE RESPIRATORY DISTRESS SYNDROME [None]
  - NEOPLASM MALIGNANT [None]
  - RADIATION PNEUMONITIS [None]
